FAERS Safety Report 10305989 (Version 1)
Quarter: 2014Q3

REPORT INFORMATION
  Report Type: Report from Study
  Country: JP (occurrence: JP)
  Receive Date: 20140715
  Receipt Date: 20140715
  Transmission Date: 20150326
  Serious: Yes (Death, Hospitalization)
  Sender: FDA-Public Use
  Company Number: JP-BAYER-2014-102289

PATIENT
  Age: 75 Year
  Sex: Male
  Weight: 48 kg

DRUGS (7)
  1. LASIX [Concomitant]
     Active Substance: FUROSEMIDE
     Indication: FLUID RETENTION
  2. LASIX [Concomitant]
     Active Substance: FUROSEMIDE
     Indication: COLON CANCER
     Dosage: DAILY DOSE 20 MG
     Route: 048
     Dates: end: 20140507
  3. LASIX [Concomitant]
     Active Substance: FUROSEMIDE
     Indication: PROPHYLAXIS
  4. ALDACTONE [Concomitant]
     Active Substance: SPIRONOLACTONE
     Indication: COLON CANCER
     Dosage: 25 MG, TID
     Route: 048
     Dates: end: 20140507
  5. ALDACTONE [Concomitant]
     Active Substance: SPIRONOLACTONE
     Indication: PROPHYLAXIS
  6. STIVARGA [Suspect]
     Active Substance: REGORAFENIB
     Indication: COLON CANCER
     Dosage: ONE CYCLE IS ON FOR 3 WEEKS AND OFF FOR 1 WEEK
     Route: 048
     Dates: start: 20140421, end: 20140427
  7. ALDACTONE [Concomitant]
     Active Substance: SPIRONOLACTONE
     Indication: FLUID RETENTION

REACTIONS (3)
  - Colon cancer [Fatal]
  - Decreased appetite [Not Recovered/Not Resolved]
  - Malaise [Not Recovered/Not Resolved]

NARRATIVE: CASE EVENT DATE: 20140428
